FAERS Safety Report 17984808 (Version 1)
Quarter: 2020Q3

REPORT INFORMATION
  Report Type: Spontaneous
  Country: US (occurrence: US)
  Receive Date: 20200706
  Receipt Date: 20200706
  Transmission Date: 20201103
  Serious: No
  Sender: FDA-Public Use
  Company Number: US-VERTEX PHARMACEUTICALS-2020-014184

PATIENT
  Sex: Male
  Weight: 28 kg

DRUGS (1)
  1. SYMDEKO [Suspect]
     Active Substance: IVACAFTOR\TEZACAFTOR
     Indication: CYSTIC FIBROSIS
     Dosage: (50MG TEZA/75MG IVA, 75MG IVA) TRADITIONAL DOSING
     Route: 048

REACTIONS (1)
  - Cough [Not Recovered/Not Resolved]
